FAERS Safety Report 8348449-9 (Version None)
Quarter: 2012Q2

REPORT INFORMATION
  Report Type: 
  Country: None (occurrence: None)
  Receive Date: 20120509
  Receipt Date: 20120424
  Transmission Date: 20120825
  Serious: Yes (Other)
  Sender: FDA-Public Use
  Company Number: CHPA2012US009887

PATIENT
  Age: 51 Year
  Sex: Female

DRUGS (2)
  1. GAS-X PREVENTION [Suspect]
     Dosage: UNK, TID
     Route: 048
     Dates: start: 20111101, end: 20120208
  2. BENEFIBER [Suspect]
     Dosage: UNK, TID
     Route: 048
     Dates: start: 20111101, end: 20120201

REACTIONS (5)
  - IRRITABLE BOWEL SYNDROME [None]
  - HYPERSOMNIA [None]
  - SYNCOPE [None]
  - LETHARGY [None]
  - FALL [None]
